FAERS Safety Report 6365592-4 (Version None)
Quarter: 2009Q3

REPORT INFORMATION
  Report Type: 
  Country: None (occurrence: None)
  Receive Date: 20090919
  Receipt Date: 20090817
  Transmission Date: 20100115
  Serious: No
  Sender: FDA-Public Use
  Company Number: US-ABBOTT-09P-163-0592244-00

PATIENT
  Sex: Female

DRUGS (7)
  1. HUMIRA [Suspect]
     Indication: RHEUMATOID ARTHRITIS
     Route: 058
  2. CELEBREX [Concomitant]
     Indication: DRUG USE FOR UNKNOWN INDICATION
  3. DETROL LA [Concomitant]
     Indication: DRUG USE FOR UNKNOWN INDICATION
  4. TRAZODONE HCL [Concomitant]
     Indication: DRUG USE FOR UNKNOWN INDICATION
  5. SKELAXIN [Concomitant]
     Indication: DRUG USE FOR UNKNOWN INDICATION
  6. CLONOPIN [Concomitant]
     Indication: DRUG USE FOR UNKNOWN INDICATION
  7. UNKNOWN MEDICATION NAME [Concomitant]
     Indication: HYPERTENSION

REACTIONS (1)
  - RASH [None]
